FAERS Safety Report 21475553 (Version 1)
Quarter: 2022Q4

REPORT INFORMATION
  Report Type: Report from Study
  Country: TR (occurrence: TR)
  Receive Date: 20221019
  Receipt Date: 20221019
  Transmission Date: 20230113
  Serious: Yes (Hospitalization)
  Sender: FDA-Public Use
  Company Number: TR-BIOVITRUM-2022TR11854

PATIENT
  Age: 17 Year
  Sex: Female
  Weight: 58 kg

DRUGS (2)
  1. AVATROMBOPAG [Suspect]
     Active Substance: AVATROMBOPAG
     Indication: Immune thrombocytopenia
     Dates: start: 20220909, end: 20221010
  2. ISOTONIC SERUM [Concomitant]
     Dates: start: 20221014

REACTIONS (2)
  - Thrombocytosis [Not Recovered/Not Resolved]
  - Tinnitus [Not Recovered/Not Resolved]

NARRATIVE: CASE EVENT DATE: 20221014
